FAERS Safety Report 5038571-7 (Version None)
Quarter: 2006Q2

REPORT INFORMATION
  Report Type: 
  Country: None (occurrence: None)
  Receive Date: 20060629
  Receipt Date: 20060619
  Transmission Date: 20061013
  Serious: Yes (Life-Threatening)
  Sender: FDA-Public Use
  Company Number: FR-BRISTOL-MYERS SQUIBB COMPANY-13416466

PATIENT
  Age: 39 Year
  Sex: Female
  Weight: 79 kg

DRUGS (1)
  1. TAXOL [Suspect]
     Indication: NEOPLASM MALIGNANT
     Route: 042
     Dates: start: 20060526, end: 20060526

REACTIONS (1)
  - SHOCK [None]
